FAERS Safety Report 5389731-7 (Version None)
Quarter: 2007Q3

REPORT INFORMATION
  Report Type: 
  Country: None (occurrence: None)
  Receive Date: 20070713
  Receipt Date: 20070702
  Transmission Date: 20080115
  Serious: No
  Sender: FDA-Public Use
  Company Number: 2007-160891-NL

PATIENT
  Sex: Female

DRUGS (2)
  1. MIRTAZAPINE [Suspect]
     Indication: ANXIETY
     Dosage: 7.5 MG ONCE
     Route: 048
  2. MIRTAZAPINE [Suspect]
     Indication: SLEEP DISORDER
     Dosage: 7.5 MG ONCE
     Route: 048

REACTIONS (1)
  - TACHYCARDIA [None]
